FAERS Safety Report 6109472-8 (Version None)
Quarter: 2009Q1

REPORT INFORMATION
  Report Type: 
  Country: None (occurrence: None)
  Receive Date: 20090310
  Receipt Date: 20090304
  Transmission Date: 20090719
  Serious: Yes (Hospitalization)
  Sender: FDA-Public Use
  Company Number: US-ABBOTT-09P-163-0559177-00

PATIENT
  Sex: Female
  Weight: 104.42 kg

DRUGS (5)
  1. HUMIRA [Suspect]
     Indication: RHEUMATOID ARTHRITIS
     Route: 058
     Dates: start: 20090202
  2. HUMIRA [Suspect]
     Indication: CROHN'S DISEASE
  3. LIALDA [Concomitant]
     Indication: CROHN'S DISEASE
  4. FOLIC ACID [Concomitant]
     Indication: RHEUMATOID ARTHRITIS
  5. ZEGERID [Concomitant]
     Indication: GASTROOESOPHAGEAL REFLUX DISEASE

REACTIONS (14)
  - BACK PAIN [None]
  - BREAST SWELLING [None]
  - CHEST DISCOMFORT [None]
  - DYSPHONIA [None]
  - DYSPNOEA [None]
  - INJECTION SITE SWELLING [None]
  - MUSCULOSKELETAL PAIN [None]
  - NASAL CONGESTION [None]
  - NASOPHARYNGITIS [None]
  - NECK PAIN [None]
  - OROPHARYNGEAL PAIN [None]
  - PLEURISY [None]
  - PRESYNCOPE [None]
  - SINUS OPERATION [None]
